FAERS Safety Report 5941782-7 (Version None)
Quarter: 2008Q4

REPORT INFORMATION
  Report Type: 
  Country: None (occurrence: None)
  Receive Date: 20081105
  Receipt Date: 20081029
  Transmission Date: 20090506
  Serious: Yes (Hospitalization, Other)
  Sender: FDA-Public Use
  Company Number: PHHY2008DE15179

PATIENT
  Sex: Female

DRUGS (3)
  1. ZOMETA [Suspect]
     Indication: METASTASES TO BONE
     Dosage: 4 MG EVERY 4 WEEKS
     Route: 042
     Dates: start: 20021201, end: 20080501
  2. ZOMETA [Suspect]
     Indication: BREAST CANCER
  3. AREDIA [Suspect]
     Dosage: UNK

REACTIONS (6)
  - BONE OPERATION [None]
  - DENTAL DISCOMFORT [None]
  - DENTAL OPERATION [None]
  - FISTULA [None]
  - OSTEONECROSIS [None]
  - PLASTIC SURGERY [None]
